FAERS Safety Report 5556175-4 (Version None)
Quarter: 2007Q4

REPORT INFORMATION
  Report Type: 
  Country: None (occurrence: None)
  Receive Date: 20071130
  Receipt Date: 20070725
  Transmission Date: 20080405
  Serious: No
  Sender: FDA-Public Use
  Company Number: 2006PV021029

PATIENT
  Age: 42 Year
  Sex: Male

DRUGS (4)
  1. EXENATIDE (EXENATIDE) PEN, DISPOSABLE [Suspect]
     Indication: TYPE 2 DIABETES MELLITUS
     Dosage: 10 UG, 2/D, SUBUCTANEOUS; 10 UG, SUBCUTNAEOUS
     Route: 058
     Dates: start: 20060601
  2. EXENATIDE (EXENATIDE) PEN, DISPOSABLE [Suspect]
  3. ACTOS [Concomitant]
  4. METFORMIN HCL [Concomitant]

REACTIONS (1)
  - BLOOD GLUCOSE INCREASED [None]
